FAERS Safety Report 4745810-6 (Version None)
Quarter: 2005Q3

REPORT INFORMATION
  Report Type: 
  Country: None (occurrence: None)
  Receive Date: 20050816
  Receipt Date: 20040907
  Transmission Date: 20060218
  Serious: Yes (Other)
  Sender: FDA-Public Use
  Company Number: US-SP-2004-02974

PATIENT
  Age: 82 Year
  Sex: Male

DRUGS (2)
  1. THERACYS [Suspect]
     Indication: BLADDER CANCER RECURRENT
     Route: 043
     Dates: start: 20040831
  2. THERACYS [Suspect]
     Route: 043
     Dates: start: 20040831

REACTIONS (2)
  - ABSCESS [None]
  - BLOOD GLUCOSE INCREASED [None]
